FAERS Safety Report 7764972-X (Version None)
Quarter: 2011Q3

REPORT INFORMATION
  Report Type: 
  Country: None (occurrence: None)
  Receive Date: 20110921
  Receipt Date: 20110916
  Transmission Date: 20111222
  Serious: Yes (Other)
  Sender: FDA-Public Use
  Company Number: US-PFIZER INC-2011204772

PATIENT
  Sex: Female
  Weight: 70.295 kg

DRUGS (4)
  1. COMBIVENT [Concomitant]
     Indication: ASTHMA
     Dosage: UNK
  2. LYRICA [Suspect]
  3. LYRICA [Suspect]
     Indication: MUSCLE SPASMS
  4. LYRICA [Suspect]
     Indication: BACK PAIN
     Dosage: 50 MG, 3X/DAY
     Route: 048
     Dates: start: 20090101, end: 20110912

REACTIONS (5)
  - MUSCLE SPASMS [None]
  - HYPERHIDROSIS [None]
  - URINARY TRACT INFECTION [None]
  - FATIGUE [None]
  - HEADACHE [None]
